FAERS Safety Report 4901163-1 (Version None)
Quarter: 2006Q1

REPORT INFORMATION
  Report Type: 
  Country: None (occurrence: None)
  Receive Date: 20060201
  Receipt Date: 20060119
  Transmission Date: 20060701
  Serious: Yes (Hospitalization)
  Sender: FDA-Public Use
  Company Number: HQWYE450123JAN06

PATIENT
  Age: 52 Year
  Sex: Female

DRUGS (2)
  1. RAPAMUNE [Suspect]
     Indication: PROPHYLAXIS AGAINST TRANSPLANT REJECTION
     Dosage: 5 MG 1X PER 1 DAY
     Route: 048
     Dates: start: 20030630
  2. CORTICOSTEROIDS (CORTICOSTEROIDS) [Suspect]

REACTIONS (8)
  - BACTERIA URINE IDENTIFIED [None]
  - BIOPSY SITE UNSPECIFIED ABNORMAL [None]
  - C-REACTIVE PROTEIN INCREASED [None]
  - IMPAIRED HEALING [None]
  - KLEBSIELLA INFECTION [None]
  - NECROSIS [None]
  - POSTOPERATIVE WOUND COMPLICATION [None]
  - WOUND INFECTION STAPHYLOCOCCAL [None]
